FAERS Safety Report 7283019-5 (Version None)
Quarter: 2011Q1

REPORT INFORMATION
  Report Type: 
  Country: None (occurrence: None)
  Receive Date: 20110209
  Receipt Date: 20110201
  Transmission Date: 20110831
  Serious: Yes (Hospitalization)
  Sender: FDA-Public Use
  Company Number: FR-SANOFI-AVENTIS-2010SA071212

PATIENT
  Age: 85 Year
  Sex: Male

DRUGS (9)
  1. RIVOTRIL [Concomitant]
     Route: 048
  2. FUROSEMIDE [Concomitant]
     Route: 065
  3. ART [Concomitant]
     Route: 065
  4. ERY-TAB [Concomitant]
     Route: 048
  5. SINTROM [Concomitant]
     Route: 048
  6. MULTAQ [Suspect]
     Indication: ATRIAL FIBRILLATION
     Route: 048
     Dates: start: 20101001, end: 20101029
  7. ATACAND [Suspect]
     Route: 048
     Dates: start: 20100827, end: 20101029
  8. FUROSEMIDE [Concomitant]
     Route: 065
  9. LYRICA [Concomitant]
     Route: 048

REACTIONS (6)
  - RENAL FAILURE [None]
  - BRADYCARDIA [None]
  - OVERDOSE [None]
  - OFF LABEL USE [None]
  - AZOTAEMIA [None]
  - BLOOD CREATININE INCREASED [None]
